FAERS Safety Report 17644097 (Version 1)
Quarter: 2020Q2

REPORT INFORMATION
  Report Type: Spontaneous
  Country: US (occurrence: US)
  Receive Date: 20200408
  Receipt Date: 20200408
  Transmission Date: 20200713
  Serious: Yes (Other)
  Sender: FDA-Public Use
  Company Number: None

PATIENT
  Age: 60 Year
  Sex: Female
  Weight: 65.25 kg

DRUGS (14)
  1. LEXEPRO [Concomitant]
  2. TRAZODONE [Concomitant]
     Active Substance: TRAZODONE HYDROCHLORIDE
  3. TUMERIC [Concomitant]
     Active Substance: HERBALS\TURMERIC
  4. FLAX SEED [Concomitant]
     Active Substance: FLAX SEED
  5. CALCIUM CITRATE [Concomitant]
     Active Substance: CALCIUM CITRATE
  6. CELEBREX [Concomitant]
     Active Substance: CELECOXIB
  7. FLEXERIL [Concomitant]
     Active Substance: CYCLOBENZAPRINE HYDROCHLORIDE
  8. DAILY VITAMINS [Concomitant]
     Active Substance: VITAMINS
  9. TRAMADOL. [Concomitant]
     Active Substance: TRAMADOL
  10. PROPRANOLOL [Concomitant]
     Active Substance: PROPRANOLOL HYDROCHLORIDE
  11. ROSUVASTATIN. [Suspect]
     Active Substance: ROSUVASTATIN
     Indication: LOW DENSITY LIPOPROTEIN INCREASED
     Dosage: ?          QUANTITY:30 TABLET(S);?
     Route: 048
     Dates: start: 20200403, end: 20200407
  12. BUPROPRION [Concomitant]
     Active Substance: BUPROPION
  13. CITERIZINE [Concomitant]
  14. TART CHERRY EXTRACT [Concomitant]

REACTIONS (3)
  - Myalgia [None]
  - Pain [None]
  - Pain in extremity [None]

NARRATIVE: CASE EVENT DATE: 20200403
